FAERS Safety Report 4901976-6 (Version None)
Quarter: 2006Q1

REPORT INFORMATION
  Report Type: 
  Country: None (occurrence: None)
  Receive Date: 20060206
  Receipt Date: 20051209
  Transmission Date: 20060701
  Serious: Yes (Hospitalization)
  Sender: FDA-Public Use
  Company Number: IT-ROCHE-427979

PATIENT
  Age: 60 Year
  Sex: Female

DRUGS (8)
  1. DACLIZUMAB [Suspect]
     Indication: LIVER TRANSPLANT
     Route: 042
     Dates: start: 20051015
  2. DACLIZUMAB [Suspect]
     Route: 042
     Dates: start: 20051021
  3. FK506 [Suspect]
     Indication: LIVER TRANSPLANT
     Route: 048
     Dates: start: 20051015
  4. FK506 [Suspect]
     Route: 048
     Dates: start: 20051023, end: 20051024
  5. FK506 [Suspect]
     Route: 048
     Dates: start: 20051025
  6. PIPERACILLIN/TAZOBACTAM [Concomitant]
     Dates: start: 20051020
  7. VANCOMYCIN [Concomitant]
     Dates: start: 20051021
  8. CEFTRIAXONE [Concomitant]
     Dates: start: 20051023

REACTIONS (6)
  - HEPATIC FUNCTION ABNORMAL [None]
  - LIVER TRANSPLANT REJECTION [None]
  - OPERATIVE HAEMORRHAGE [None]
  - RENAL FAILURE [None]
  - SEPSIS [None]
  - SHOCK [None]
